FAERS Safety Report 15969325 (Version 2)
Quarter: 2020Q4

REPORT INFORMATION
  Report Type: Spontaneous
  Country: NL (occurrence: NL)
  Receive Date: 20190215
  Receipt Date: 20201201
  Transmission Date: 20210113
  Serious: Yes (Other)
  Sender: FDA-Public Use
  Company Number: PHHY2019NL031863

PATIENT
  Age: 67 Year
  Sex: Female

DRUGS (5)
  1. DIPYRIDAMOLE. [Suspect]
     Active Substance: DIPYRIDAMOLE
     Indication: MENINGOENCEPHALITIS HERPETIC
     Dosage: UNK
     Route: 065
  2. ACICLOVIR CLARIS [Suspect]
     Active Substance: ACYCLOVIR SODIUM
     Indication: VASCULITIS
  3. CARBASALATE CALCIUM [Concomitant]
     Active Substance: CARBASPIRIN CALCIUM
     Indication: CEREBROVASCULAR ACCIDENT
     Dosage: 80 MG, QD
     Route: 065
  4. DIPYRIDAMOLE. [Suspect]
     Active Substance: DIPYRIDAMOLE
     Indication: VASCULITIS
  5. ACICLOVIR CLARIS [Suspect]
     Active Substance: ACYCLOVIR SODIUM
     Indication: MENINGOENCEPHALITIS HERPETIC
     Dosage: 25 MCG/ML
     Route: 042

REACTIONS (1)
  - Drug ineffective [Unknown]
